FAERS Safety Report 16970740 (Version 1)
Quarter: 2019Q4

REPORT INFORMATION
  Report Type: Spontaneous
  Country: US (occurrence: US)
  Receive Date: 20191029
  Receipt Date: 20191029
  Transmission Date: 20200122
  Serious: No
  Sender: FDA-Public Use
  Company Number: US-ANIPHARMA-2019-US-004680

PATIENT
  Age: 87 Year
  Sex: Female

DRUGS (1)
  1. DIPHENOXYLATE HYDROCHLORIDE + ATROPINE SULFATE (NON-SPECIFIC) [Suspect]
     Active Substance: ATROPINE SULFATE\DIPHENOXYLATE HYDROCHLORIDE
     Indication: PRODUCT USED FOR UNKNOWN INDICATION
     Dosage: 2.5 MG

REACTIONS (1)
  - Diarrhoea [Unknown]
